FAERS Safety Report 13460790 (Version 1)
Quarter: 2017Q2

REPORT INFORMATION
  Report Type: Spontaneous
  Country: US (occurrence: US)
  Receive Date: 20170420
  Receipt Date: 20170420
  Transmission Date: 20170830
  Serious: No
  Sender: FDA-Public Use
  Company Number: US-TEVA-654960USA

PATIENT
  Sex: Female

DRUGS (2)
  1. PRAVASTATIN. [Suspect]
     Active Substance: PRAVASTATIN
     Dosage: 40 MILLIGRAM DAILY;
     Dates: start: 201601
  2. PRAVASTATIN. [Suspect]
     Active Substance: PRAVASTATIN
     Dates: start: 2015, end: 2015

REACTIONS (5)
  - Spinal pain [Unknown]
  - Headache [Unknown]
  - Pain in extremity [Unknown]
  - Muscle tightness [Unknown]
  - Feeling abnormal [Unknown]

NARRATIVE: CASE EVENT DATE: 2016
